FAERS Safety Report 22241897 (Version 2)
Quarter: 2023Q2

REPORT INFORMATION
  Report Type: Spontaneous
  Country: CA (occurrence: CA)
  Receive Date: 20230421
  Receipt Date: 20230519
  Transmission Date: 20230721
  Serious: Yes (Life-Threatening, Other)
  Sender: FDA-Public Use
  Company Number: CA-002147023-NVSC2023CA091046

PATIENT
  Age: 79 Year
  Sex: Male

DRUGS (1)
  1. ERELZI [Suspect]
     Active Substance: ETANERCEPT-SZZS
     Indication: Rheumatoid arthritis
     Dosage: 50 MG, QW (1 EVERY 1 WEEKS)
     Route: 065

REACTIONS (3)
  - Prostate cancer [Not Recovered/Not Resolved]
  - Dementia [Not Recovered/Not Resolved]
  - Pain [Not Recovered/Not Resolved]
